APPROVED DRUG PRODUCT: COVERA-HS
Active Ingredient: VERAPAMIL HYDROCHLORIDE
Strength: 180MG
Dosage Form/Route: TABLET, EXTENDED RELEASE;ORAL
Application: N020552 | Product #001
Applicant: PFIZER INC
Approved: Feb 26, 1996 | RLD: No | RS: No | Type: DISCN